FAERS Safety Report 22658494 (Version 1)
Quarter: 2023Q2

REPORT INFORMATION
  Report Type: Spontaneous
  Country: AU (occurrence: AU)
  Receive Date: 20230630
  Receipt Date: 20230630
  Transmission Date: 20230722
  Serious: Yes (Other)
  Sender: FDA-Public Use
  Company Number: AU-MYLANLABS-2023M1068176

PATIENT
  Age: 4 Decade
  Sex: Female

DRUGS (6)
  1. MINOCYCLINE [Suspect]
     Active Substance: MINOCYCLINE HYDROCHLORIDE
     Indication: Morbihan disease
     Dosage: UNK
     Route: 048
  2. ERYTHROMYCIN [Suspect]
     Active Substance: ERYTHROMYCIN
     Indication: Morbihan disease
     Dosage: UNK
     Route: 048
  3. AZELAIC ACID [Suspect]
     Active Substance: AZELAIC ACID
     Indication: Morbihan disease
     Dosage: UNK
     Route: 065
  4. BRIMONIDINE [Suspect]
     Active Substance: BRIMONIDINE TARTRATE
     Indication: Morbihan disease
     Dosage: UNK
     Route: 065
  5. PREDNISOLONE [Suspect]
     Active Substance: PREDNISOLONE
     Indication: Morbihan disease
     Dosage: UNK
     Route: 048
  6. ISOTRETINOIN [Suspect]
     Active Substance: ISOTRETINOIN
     Indication: Morbihan disease
     Dosage: UNK
     Route: 048

REACTIONS (2)
  - Drug ineffective for unapproved indication [Unknown]
  - Off label use [Unknown]
